FAERS Safety Report 17193046 (Version 2)
Quarter: 2020Q2

REPORT INFORMATION
  Report Type: Spontaneous
  Country: US (occurrence: US)
  Receive Date: 20191223
  Receipt Date: 20200416
  Transmission Date: 20200713
  Serious: Yes (Death, Other)
  Sender: FDA-Public Use
  Company Number: US-SA-2019SA351196

PATIENT
  Age: 46 Year
  Sex: Female

DRUGS (18)
  1. CYCLOBENZAPRIN [Concomitant]
     Active Substance: CYCLOBENZAPRINE
  2. LEVEMIR [Concomitant]
     Active Substance: INSULIN DETEMIR
  3. MISOPROSTOL. [Concomitant]
     Active Substance: MISOPROSTOL
  4. KEVZARA [Suspect]
     Active Substance: SARILUMAB
     Indication: PRODUCT USED FOR UNKNOWN INDICATION
     Dosage: 200 MG, QOW
     Route: 058
  5. FUROSEMIDE. [Concomitant]
     Active Substance: FUROSEMIDE
  6. BACTRIM DS [Concomitant]
     Active Substance: SULFAMETHOXAZOLE\TRIMETHOPRIM
  7. DULOXETINE. [Concomitant]
     Active Substance: DULOXETINE
  8. NYSTATIN. [Concomitant]
     Active Substance: NYSTATIN
  9. PREDNISONE. [Concomitant]
     Active Substance: PREDNISONE
  10. TRAZODONE [Concomitant]
     Active Substance: TRAZODONE HYDROCHLORIDE
  11. GABAPENTIN. [Concomitant]
     Active Substance: GABAPENTIN
  12. FLUCONAZOLE. [Concomitant]
     Active Substance: FLUCONAZOLE
  13. KLOR-CON [Concomitant]
     Active Substance: POTASSIUM CHLORIDE
  14. NOVOLOG [Concomitant]
     Active Substance: INSULIN ASPART
  15. TRAMADOL HCL [Concomitant]
     Active Substance: TRAMADOL HYDROCHLORIDE
  16. FENOFIBRATE. [Concomitant]
     Active Substance: FENOFIBRATE
  17. HUMIRA [Concomitant]
     Active Substance: ADALIMUMAB
  18. SIMVASTATIN. [Concomitant]
     Active Substance: SIMVASTATIN

REACTIONS (2)
  - Product dose omission [Unknown]
  - Death [Fatal]

NARRATIVE: CASE EVENT DATE: 20200329
